FAERS Safety Report 9908960 (Version 1)
Quarter: 2014Q1

REPORT INFORMATION
  Report Type: Spontaneous
  Country: KR (occurrence: KR)
  Receive Date: 20140219
  Receipt Date: 20140219
  Transmission Date: 20141002
  Serious: Yes (Other)
  Sender: FDA-Public Use
  Company Number: KR-009507513-1402KOR009030

PATIENT
  Sex: 0

DRUGS (2)
  1. TEMOZOLOMIDE [Suspect]
     Indication: MALIGNANT GLIOMA
     Dosage: 75 MG/M2, DAILY DURING RADIOTHERAPY
  2. TEMOZOLOMIDE [Suspect]
     Dosage: 150-200 MG/M2 DAILY AFTER RADIOTHERAPY

REACTIONS (1)
  - Neurotoxicity [Unknown]
